FAERS Safety Report 23625203 (Version 1)
Quarter: 2024Q1

REPORT INFORMATION
  Report Type: Spontaneous
  Country: US (occurrence: US)
  Receive Date: 20240313
  Receipt Date: 20240313
  Transmission Date: 20240410
  Serious: No
  Sender: FDA-Public Use
  Company Number: US-SA-SAC20240308000328

PATIENT
  Age: 1 Year
  Sex: Male

DRUGS (1)
  1. DUPIXENT [Suspect]
     Active Substance: DUPILUMAB
     Indication: Dermatitis atopic
     Dosage: 200MG; Q4W
     Route: 058

REACTIONS (6)
  - Scratch [Unknown]
  - Skin haemorrhage [Unknown]
  - Wound [Unknown]
  - Dry skin [Recovered/Resolved]
  - Pruritus [Unknown]
  - Therapeutic response decreased [Unknown]
